FAERS Safety Report 15838831 (Version 1)
Quarter: 2019Q1

REPORT INFORMATION
  Report Type: Spontaneous
  Country: NL (occurrence: NL)
  Receive Date: 20190117
  Receipt Date: 20190117
  Transmission Date: 20190417
  Serious: Yes (Hospitalization)
  Sender: FDA-Public Use
  Company Number: NL-NAPPMUNDI-GBR-2019-0063318

PATIENT
  Age: 40 Year
  Sex: Male
  Weight: 65 kg

DRUGS (2)
  1. DUROGESIC [Suspect]
     Active Substance: FENTANYL
     Indication: PAIN
     Dosage: 1 DF, Q48H
     Route: 065
  2. OXYNORM [Suspect]
     Active Substance: OXYCODONE HYDROCHLORIDE
     Indication: PAIN
     Dosage: DOSAGE FORM: UNSPECIFIED
     Route: 065

REACTIONS (3)
  - Underweight [Unknown]
  - General physical health deterioration [Unknown]
  - Drug effect decreased [Unknown]
